FAERS Safety Report 10035042 (Version 1)
Quarter: 2014Q1

REPORT INFORMATION
  Report Type: Spontaneous
  Country: US (occurrence: None)
  Receive Date: 20140306
  Receipt Date: 20140306
  Transmission Date: 20141002
  Serious: Yes (Hospitalization)
  Sender: FDA-Public Use
  Company Number: 163-21880-13011860

PATIENT
  Age: 72 Year
  Sex: Female
  Weight: 63.5 kg

DRUGS (15)
  1. REVLIMID [Suspect]
     Indication: DIFFUSE LARGE B-CELL LYMPHOMA
     Route: 048
     Dates: start: 20110628
  2. ATIVAN (LORAZEPAM) [Concomitant]
  3. ASPIRIN (ACETYLSALICYLIC ACID) [Concomitant]
  4. PROTONIX [Concomitant]
  5. RELPAX (ELETRIPTAN HYDROBROMIDE) [Concomitant]
  6. PROMETHAZINE (PROMETHAZINE) [Concomitant]
  7. AMITRIPTYLINE (AMITRIPTYLINE) [Concomitant]
  8. LEVOTHYROXINE (LEVOTHYROXINE) [Concomitant]
  9. AMLODIPINE-BENAZEPRIL (AMLODIPINE BESYLATE W/BENAZEPRIL HYDROCHLOR.) [Concomitant]
  10. LIPITOR (ATORVASTATIN) [Concomitant]
  11. MULTIVITAMINS (MULTIVITAMINS) [Concomitant]
  12. LEXAPRO (ESCITALOPRAM OXALATE) [Concomitant]
  13. SENNOSIDE-DOCUSATE SODIUM (SENNOSIDE A+B) [Concomitant]
  14. ZOFRAN (ONDANSETRON HYDROCHLORIDE) [Concomitant]
  15. DILAUDID (HYDROMORPHONE HYDROCHLORIDE) [Concomitant]

REACTIONS (1)
  - Meningitis aseptic [None]
